FAERS Safety Report 5978546-4 (Version None)
Quarter: 2008Q4

REPORT INFORMATION
  Report Type: 
  Country: None (occurrence: None)
  Receive Date: 20081204
  Receipt Date: 20080811
  Transmission Date: 20090506
  Serious: No
  Sender: FDA-Public Use
  Company Number: US-BAYER-200814538BCC

PATIENT
  Age: 63 Year
  Sex: Male
  Weight: 61 kg

DRUGS (5)
  1. ALEVE [Suspect]
     Indication: TOOTHACHE
     Dosage: UNIT DOSE: 220 MG
     Dates: start: 20080810
  2. ALEVE [Suspect]
     Dosage: UNIT DOSE: 220 MG
     Dates: start: 20080811
  3. ALEVE [Suspect]
     Dosage: UNIT DOSE: 220 MG
     Dates: start: 20080811
  4. ALEVE [Suspect]
     Dosage: UNIT DOSE: 220 MG
     Dates: start: 20080811
  5. LISINOPRIL [Concomitant]

REACTIONS (1)
  - NO ADVERSE EVENT [None]
